FAERS Safety Report 5260857-1 (Version None)
Quarter: 2007Q1

REPORT INFORMATION
  Report Type: 
  Country: None (occurrence: None)
  Receive Date: 20070309
  Receipt Date: 20070309
  Transmission Date: 20070707
  Serious: Yes (Other)
  Sender: FDA-Public Use
  Company Number: US-GLAXOSMITHKLINE-A0642368A

PATIENT
  Age: 45 Year
  Sex: Male

DRUGS (2)
  1. SOMINEX [Suspect]
     Dosage: 2TAB SINGLE DOSE
     Route: 048
     Dates: start: 20070306, end: 20070306
  2. NO CONCURRENT MEDICATION [Concomitant]

REACTIONS (8)
  - DEPRESSED LEVEL OF CONSCIOUSNESS [None]
  - IMPAIRED DRIVING ABILITY [None]
  - INCOHERENT [None]
  - INITIAL INSOMNIA [None]
  - MUSCLE TWITCHING [None]
  - PERFORMANCE STATUS DECREASED [None]
  - PRURITUS [None]
  - SOMNOLENCE [None]
